FAERS Safety Report 7593009-0 (Version None)
Quarter: 2011Q3

REPORT INFORMATION
  Report Type: 
  Country: None (occurrence: None)
  Receive Date: 20110706
  Receipt Date: 20110628
  Transmission Date: 20111222
  Serious: Yes (Other)
  Sender: FDA-Public Use
  Company Number: JP-GLAXOSMITHKLINE-B0728286A

PATIENT
  Sex: Female

DRUGS (3)
  1. LOXONIN [Concomitant]
     Dosage: 3IUAX PER DAY
     Route: 048
  2. VALTREX [Suspect]
     Indication: HERPES ZOSTER
     Dosage: 3000MG PER DAY
     Route: 048
     Dates: start: 20110620, end: 20110621
  3. ISALON [Concomitant]
     Dosage: 3IUAX PER DAY
     Route: 048

REACTIONS (5)
  - LOSS OF CONSCIOUSNESS [None]
  - DIZZINESS [None]
  - RESPIRATORY DISORDER [None]
  - GAIT DISTURBANCE [None]
  - ANAPHYLACTIC REACTION [None]
